FAERS Safety Report 5357857-X (Version None)
Quarter: 2007Q2

REPORT INFORMATION
  Report Type: 
  Country: None (occurrence: None)
  Receive Date: 20070614
  Receipt Date: 20070612
  Transmission Date: 20071010
  Serious: Yes (Hospitalization, Disabling)
  Sender: FDA-Public Use
  Company Number: US-MERCK-0609USA02860

PATIENT
  Age: 74 Year
  Sex: Female

DRUGS (11)
  1. FOSAMAX [Suspect]
     Indication: OSTEOPENIA
     Route: 048
     Dates: start: 20030806, end: 20060501
  2. FOSAMAX [Suspect]
     Route: 048
     Dates: start: 20020404, end: 20020823
  3. FOSAMAX [Suspect]
     Route: 048
     Dates: start: 20000710, end: 20000921
  4. FOSAMAX [Suspect]
     Route: 048
     Dates: end: 20060701
  5. FOSAMAX [Suspect]
     Route: 048
     Dates: start: 20030101, end: 20030101
  6. FOSAMAX [Suspect]
     Route: 048
  7. THALIDOMIDE [Concomitant]
     Route: 065
  8. DIURETIC (UNSPECIFIED) [Concomitant]
     Route: 065
  9. POTASSIUM (UNSPECIFIED) [Concomitant]
     Route: 065
  10. PROCRIT [Concomitant]
     Route: 065
  11. FOSAMAX PLUS D [Suspect]
     Indication: OSTEOPENIA
     Route: 048

REACTIONS (7)
  - ACTINOMYCOSIS [None]
  - ADVERSE EVENT [None]
  - ANXIETY [None]
  - OEDEMA PERIPHERAL [None]
  - OSTEOMYELITIS [None]
  - OSTEONECROSIS [None]
  - TRANSIENT ISCHAEMIC ATTACK [None]
